FAERS Safety Report 7179097-4 (Version None)
Quarter: 2010Q4

REPORT INFORMATION
  Report Type: 
  Country: None (occurrence: None)
  Receive Date: 20101221
  Receipt Date: 20101216
  Transmission Date: 20110411
  Serious: Yes (Other)
  Sender: FDA-Public Use
  Company Number: US-PFIZER INC-2010174669

PATIENT
  Sex: Male

DRUGS (6)
  1. ACCUPRIL [Suspect]
     Indication: HYPERTENSION
     Dosage: UNK
     Route: 048
  2. LISINOPRIL [Suspect]
     Indication: HYPERTENSION
     Dosage: UNK
     Route: 048
  3. VALSARTAN [Suspect]
     Indication: HYPERTENSION
     Dosage: UNK
     Route: 048
  4. INSULIN [Concomitant]
     Indication: TYPE 2 DIABETES MELLITUS
     Dosage: UNK
  5. PROCARDIA [Concomitant]
     Indication: HYPERTENSION
     Dosage: UNK
     Route: 048
  6. LIPITOR [Concomitant]
     Indication: HYPERTENSION
     Dosage: UNK
     Route: 048

REACTIONS (1)
  - CARDIAC DISORDER [None]
